FAERS Safety Report 11052327 (Version 2)
Quarter: 2015Q3

REPORT INFORMATION
  Report Type: Report from Study
  Country: FR (occurrence: FR)
  Receive Date: 20150421
  Receipt Date: 20150709
  Transmission Date: 20151125
  Serious: Yes (Hospitalization)
  Sender: FDA-Public Use
  Company Number: FR-EXELIXIS-XL18415005338

PATIENT
  Age: 60 Year
  Sex: Male
  Weight: 64 kg

DRUGS (23)
  1. LOXEN [Concomitant]
     Active Substance: NICARDIPINE HYDROCHLORIDE
  2. FULFARLEM [Concomitant]
  3. DAFALGAN [Concomitant]
     Active Substance: ACETAMINOPHEN
  4. OLIGOSOL PHOSPHORE [Concomitant]
  5. JANUMET [Concomitant]
     Active Substance: METFORMIN HYDROCHLORIDE\SITAGLIPTIN PHOSPHATE
  6. STERIMAR [Concomitant]
     Active Substance: SEA WATER
  7. LEXOMIL [Concomitant]
     Active Substance: BROMAZEPAM
  8. ATARAX [Concomitant]
     Active Substance: HYDROXYZINE\HYDROXYZINE HYDROCHLORIDE
  9. XL184 [Suspect]
     Active Substance: CABOZANTINIB
     Indication: RENAL CELL CARCINOMA
     Dosage: 60 MG, QD
     Route: 048
     Dates: start: 20140823
  10. LEVOTHYROX [Concomitant]
     Active Substance: LEVOTHYROXINE
  11. MAGNESIUM SULFATE. [Concomitant]
     Active Substance: MAGNESIUM SULFATE
  12. JANUVIA [Concomitant]
     Active Substance: SITAGLIPTIN PHOSPHATE
  13. XPRIM [Concomitant]
  14. XL184 [Suspect]
     Active Substance: CABOZANTINIB
     Dosage: 40 MG, QD
     Route: 048
     Dates: end: 20150403
  15. IMODIUM [Concomitant]
     Active Substance: LOPERAMIDE HYDROCHLORIDE
  16. PRIMPERAN [Concomitant]
     Active Substance: METOCLOPRAMIDE HYDROCHLORIDE
  17. SMECTA [Concomitant]
     Active Substance: MONTMORILLONITE
  18. DERINOX [Concomitant]
     Active Substance: NAPHAZOLINE NITRATE\PREDNISOLONE
  19. CALCIUM SANDOZ [Concomitant]
     Active Substance: CALCIUM
  20. APROVEL [Concomitant]
     Active Substance: IRBESARTAN
  21. VOGATENE [Concomitant]
  22. INEXIUM [Concomitant]
     Active Substance: ESOMEPRAZOLE
  23. MAGNEBVIE B6 [Concomitant]

REACTIONS (1)
  - Diabetes mellitus inadequate control [Recovered/Resolved]

NARRATIVE: CASE EVENT DATE: 20150326
